FAERS Safety Report 6935881-0 (Version None)
Quarter: 2010Q3

REPORT INFORMATION
  Report Type: 
  Country: None (occurrence: None)
  Receive Date: 20100819
  Receipt Date: 20100819
  Transmission Date: 20110219
  Serious: No
  Sender: FDA-Public Use
  Company Number: None

PATIENT
  Age: 84 Year
  Sex: Male
  Weight: 77 kg

DRUGS (1)
  1. ZOLPIDEM [Suspect]
     Dosage: 5 MG AT BEDTIME PO
     Route: 048
     Dates: start: 20100512, end: 20100516

REACTIONS (7)
  - DERMATITIS CONTACT [None]
  - DRUG ERUPTION [None]
  - EOSINOPHILIA [None]
  - ERYTHEMA MULTIFORME [None]
  - RASH MACULO-PAPULAR [None]
  - RASH PRURITIC [None]
  - URTICARIA [None]
